FAERS Safety Report 14405146 (Version 1)
Quarter: 2018Q1

REPORT INFORMATION
  Report Type: Spontaneous
  Country: US (occurrence: US)
  Receive Date: 20180118
  Receipt Date: 20180118
  Transmission Date: 20180509
  Serious: No
  Sender: FDA-Public Use
  Company Number: US-JNJFOC-20171124405

PATIENT
  Age: 60 Year
  Sex: Female

DRUGS (4)
  1. HALDOL [Concomitant]
     Active Substance: HALOPERIDOL
     Route: 065
  2. TEGRETOL [Concomitant]
     Active Substance: CARBAMAZEPINE
     Route: 065
  3. HALDOL DECANOATE [Suspect]
     Active Substance: HALOPERIDOL DECANOATE
     Indication: PRODUCT USED FOR UNKNOWN INDICATION
     Route: 030
  4. RISPERDAL [Suspect]
     Active Substance: RISPERIDONE
     Indication: PRODUCT USED FOR UNKNOWN INDICATION
     Route: 048
     Dates: start: 201710, end: 2017

REACTIONS (8)
  - Hypoaesthesia [Not Recovered/Not Resolved]
  - Treatment noncompliance [Unknown]
  - Musculoskeletal stiffness [Not Recovered/Not Resolved]
  - Gait inability [Not Recovered/Not Resolved]
  - Drug ineffective [Unknown]
  - Pain [Not Recovered/Not Resolved]
  - Malaise [Unknown]
  - Somnolence [Unknown]

NARRATIVE: CASE EVENT DATE: 201703
